FAERS Safety Report 14141989 (Version 1)
Quarter: 2017Q4

REPORT INFORMATION
  Report Type: Spontaneous
  Country: US (occurrence: US)
  Receive Date: 20171030
  Receipt Date: 20171030
  Transmission Date: 20180321
  Serious: No
  Sender: FDA-Public Use
  Company Number: US-APOTEX-2016AP013559

PATIENT
  Age: 80 Year
  Sex: Female

DRUGS (2)
  1. FLUTICASONE PROPIONATE. [Suspect]
     Active Substance: FLUTICASONE PROPIONATE
     Indication: SINUSITIS
     Dosage: UNK
     Route: 045
     Dates: start: 2014, end: 20160919
  2. AYR                                /00083601/ [Concomitant]
     Indication: SINUS DISORDER
     Dosage: SEVERAL TIMES A DAY
     Route: 065

REACTIONS (2)
  - Pruritus [Not Recovered/Not Resolved]
  - Dry skin [Not Recovered/Not Resolved]
